FAERS Safety Report 10210995 (Version 1)
Quarter: 2014Q2

REPORT INFORMATION
  Report Type: Spontaneous
  Country: IE (occurrence: IE)
  Receive Date: 20140602
  Receipt Date: 20140602
  Transmission Date: 20141212
  Serious: Yes (Death)
  Sender: FDA-Public Use
  Company Number: IE-AMGEN INC.-IRLSP2014040449

PATIENT
  Age: 72 Year
  Sex: Male

DRUGS (10)
  1. NEULASTA [Suspect]
     Indication: LUNG NEOPLASM MALIGNANT
     Dosage: 6MG/0.6MLS, POST CHEMO EVERY THREE WEEKS
     Route: 058
     Dates: start: 20120517
  2. ZOTON [Concomitant]
     Dosage: UNK
  3. TRAMADOL [Concomitant]
     Dosage: UNK
  4. EMEND                              /01627301/ [Concomitant]
     Dosage: UNK
  5. MOTILIUM                           /00498201/ [Concomitant]
     Dosage: UNK
  6. ZOMEL                              /01159001/ [Concomitant]
     Dosage: UNK
  7. CARBOPLATIN [Concomitant]
     Indication: LUNG NEOPLASM MALIGNANT
     Dosage: UNK
  8. ALIMTA [Concomitant]
     Dosage: UNK
  9. RANITIDINE [Concomitant]
     Dosage: UNK
  10. DEXAMETHASONE [Concomitant]
     Dosage: UNK

REACTIONS (1)
  - Death [Fatal]
